FAERS Safety Report 20613537 (Version 2)
Quarter: 2022Q2

REPORT INFORMATION
  Report Type: Report from Study
  Country: IT (occurrence: IT)
  Receive Date: 20220319
  Receipt Date: 20220412
  Transmission Date: 20220721
  Serious: Yes (Death, Other)
  Sender: FDA-Public Use
  Company Number: IT-ABBVIE-22K-083-4318864-00

PATIENT
  Sex: Male
  Weight: 80 kg

DRUGS (7)
  1. VENETOCLAX [Suspect]
     Active Substance: VENETOCLAX
     Indication: Mantle cell lymphoma
     Route: 048
     Dates: start: 202111
  2. VENETOCLAX [Suspect]
     Active Substance: VENETOCLAX
     Route: 048
     Dates: start: 20211209, end: 20220131
  3. VARCODES [Concomitant]
     Indication: Antiinflammatory therapy
     Route: 048
     Dates: start: 20211115
  4. OMEPRAZOLE [Concomitant]
     Active Substance: OMEPRAZOLE
     Indication: Gastrooesophageal reflux disease
     Route: 048
     Dates: start: 20210910
  5. ERYTHROPOIETIN [Concomitant]
     Active Substance: ERYTHROPOIETIN
     Indication: Cytopenia
     Dosage: 40000 U 1FL/WEEK
     Route: 058
     Dates: start: 20210716
  6. NALOXONE HYDROCHLORIDE\OXYCODONE HYDROCHLORIDE [Concomitant]
     Active Substance: NALOXONE HYDROCHLORIDE\OXYCODONE HYDROCHLORIDE
     Indication: Bone pain
     Dosage: 10 MG 2/DIE
     Route: 048
     Dates: start: 20220121
  7. ALLOPURINOL [Concomitant]
     Active Substance: ALLOPURINOL
     Indication: Neoplasm
     Route: 048
     Dates: start: 20190405

REACTIONS (4)
  - Mantle cell lymphoma [Fatal]
  - Splenomegaly [Unknown]
  - Bone pain [Unknown]
  - Cytopenia [Unknown]

NARRATIVE: CASE EVENT DATE: 20220131
